FAERS Safety Report 16173868 (Version 1)
Quarter: 2019Q2

REPORT INFORMATION
  Report Type: Spontaneous
  Country: US (occurrence: US)
  Receive Date: 20190306
  Receipt Date: 20190306
  Transmission Date: 20190711
  Serious: Yes (Hospitalization)
  Sender: FDA-Public Use
  Company Number: None

PATIENT
  Age: 46 Year
  Sex: Male

DRUGS (4)
  1. ATORVASTATIN [Concomitant]
     Active Substance: ATORVASTATIN
  2. ALBUTEROL NEB [Concomitant]
  3. INLYTA [Suspect]
     Active Substance: AXITINIB
     Indication: THYROID CANCER
     Route: 048
     Dates: start: 20190306
  4. BRILINTA [Concomitant]
     Active Substance: TICAGRELOR

REACTIONS (1)
  - Respiratory disorder [None]
